FAERS Safety Report 9861995 (Version 2)
Quarter: 2014Q1

REPORT INFORMATION
  Report Type: Spontaneous
  Country: DE (occurrence: DE)
  Receive Date: 20140203
  Receipt Date: 20140203
  Transmission Date: 20141002
  Serious: Yes (Life-Threatening)
  Sender: FDA-Public Use
  Company Number: DE-JNJFOC-20140113862

PATIENT
  Age: 34 Year
  Sex: Female

DRUGS (7)
  1. REMICADE [Suspect]
     Indication: PSORIATIC ARTHROPATHY
     Route: 042
     Dates: start: 20131220, end: 20131220
  2. REMICADE [Suspect]
     Indication: PSORIATIC ARTHROPATHY
     Route: 042
     Dates: start: 201305
  3. REMICADE [Suspect]
     Indication: PSORIASIS
     Route: 042
     Dates: start: 201305
  4. REMICADE [Suspect]
     Indication: PSORIASIS
     Route: 042
     Dates: start: 20131220, end: 20131220
  5. METHOTREXATE [Concomitant]
     Indication: PSORIASIS
     Route: 065
     Dates: start: 201305
  6. FOLSAURE [Concomitant]
     Route: 065
     Dates: start: 201305
  7. FEXOFENADINE [Concomitant]
     Indication: PREMEDICATION
     Route: 048
     Dates: start: 201305

REACTIONS (3)
  - Confusional state [Recovered/Resolved]
  - Anaphylactic reaction [Recovered/Resolved]
  - Infusion related reaction [Recovered/Resolved]
